FAERS Safety Report 5418683-6 (Version None)
Quarter: 2007Q3

REPORT INFORMATION
  Report Type: 
  Country: None (occurrence: None)
  Receive Date: 20070817
  Receipt Date: 20070807
  Transmission Date: 20080115
  Serious: Yes (Other)
  Sender: FDA-Public Use
  Company Number: US-PFIZER INC-2007056713

PATIENT
  Age: 50 Year
  Sex: Female
  Weight: 136.1 kg

DRUGS (12)
  1. AROMASIN [Suspect]
     Indication: BREAST CANCER
     Dosage: DAILY DOSE:25MG-FREQ:DAILY
     Route: 048
     Dates: start: 20070508, end: 20070625
  2. AROMASIN [Suspect]
  3. LUPRON [Suspect]
     Indication: BREAST CANCER
     Route: 030
  4. CENTRUM SILVER [Concomitant]
     Route: 048
  5. CLARITIN [Concomitant]
     Route: 048
  6. GERITOL [Concomitant]
     Route: 048
  7. GLUCOSAMINE W/CHONDROITIN SULFATES [Concomitant]
     Dosage: TEXT:500-400 MG DAILY
     Route: 048
     Dates: start: 20070625
  8. INDAPAMIDE [Concomitant]
     Route: 048
  9. NASONEX [Concomitant]
     Dosage: FREQ:AS NEEDED
     Route: 045
     Dates: start: 20070625
  10. NEXIUM [Concomitant]
     Dates: start: 20041220
  11. VITAMIN D [Concomitant]
     Route: 048
  12. ANTACID ^WALGREENS^ [Concomitant]
     Dates: start: 20041220

REACTIONS (1)
  - ATRIAL FIBRILLATION [None]
